FAERS Safety Report 23486514 (Version 1)
Quarter: 2024Q1

REPORT INFORMATION
  Report Type: Spontaneous
  Country: US (occurrence: None)
  Receive Date: 20240205
  Receipt Date: 20240205
  Transmission Date: 20240409
  Serious: Yes (Life-Threatening, Hospitalization, Disabling, Other)
  Sender: FDA-Public Use
  Company Number: None

PATIENT
  Age: 49 Year
  Sex: Female
  Weight: 43.65 kg

DRUGS (13)
  1. TOPAMAX [Suspect]
     Active Substance: TOPIRAMATE
  2. PREGABALIN [Suspect]
     Active Substance: PREGABALIN
  3. NORTRIPTYLINE [Suspect]
     Active Substance: NORTRIPTYLINE
  4. IMITREX [Suspect]
     Active Substance: SUMATRIPTAN SUCCINATE
  5. NARATRIPTAN [Suspect]
     Active Substance: NARATRIPTAN HYDROCHLORIDE
  6. SERTRALINE [Suspect]
     Active Substance: SERTRALINE HYDROCHLORIDE
  7. PROZAC [Suspect]
     Active Substance: FLUOXETINE HYDROCHLORIDE
  8. DULOXETINE [Suspect]
     Active Substance: DULOXETINE
  9. ONDANSETRON [Suspect]
     Active Substance: ONDANSETRON
  10. LORAZEPAM [Suspect]
     Active Substance: LORAZEPAM
  11. METOCLOPRAMIDE [Suspect]
     Active Substance: METOCLOPRAMIDE
  12. LOMOTIL [Suspect]
     Active Substance: ATROPINE SULFATE\DIPHENOXYLATE HYDROCHLORIDE
  13. WELLBUTRIN [Suspect]
     Active Substance: BUPROPION HYDROCHLORIDE

REACTIONS (21)
  - Dehydration [None]
  - Loss of consciousness [None]
  - Electrocardiogram abnormal [None]
  - Blood magnesium decreased [None]
  - Drug monitoring procedure not performed [None]
  - Pain [None]
  - Nervous system disorder [None]
  - Stress [None]
  - Anxiety [None]
  - Serotonin syndrome [None]
  - Suicide attempt [None]
  - Myocardial injury [None]
  - Somatic symptom disorder [None]
  - Asthenia [None]
  - Chest pain [None]
  - Blindness [None]
  - Paraesthesia [None]
  - Cerebrovascular accident [None]
  - Muscle spasms [None]
  - Memory impairment [None]
  - Cognitive disorder [None]

NARRATIVE: CASE EVENT DATE: 20231223
